FAERS Safety Report 12373517 (Version 1)
Quarter: 2016Q2

REPORT INFORMATION
  Report Type: Spontaneous
  Country: IR (occurrence: IR)
  Receive Date: 20160516
  Receipt Date: 20160516
  Transmission Date: 20160815
  Serious: Yes (Hospitalization)
  Sender: FDA-Public Use
  Company Number: IR-IPCA LABORATORIES LIMITED-IPC201605-000417

PATIENT
  Age: 23 Year
  Sex: Male

DRUGS (1)
  1. TRAMADOL. [Suspect]
     Active Substance: TRAMADOL
     Indication: PREMATURE EJACULATION
     Route: 048

REACTIONS (5)
  - Rhabdomyolysis [Recovered/Resolved]
  - Toxicity to various agents [Unknown]
  - Renal impairment [Recovered/Resolved]
  - Serotonin syndrome [Unknown]
  - Hepatic enzyme increased [Unknown]
